FAERS Safety Report 4320260-5 (Version None)
Quarter: 2004Q1

REPORT INFORMATION
  Report Type: 
  Country: None (occurrence: None)
  Receive Date: 20040317
  Receipt Date: 20040309
  Transmission Date: 20041129
  Serious: Yes (Hospitalization)
  Sender: FDA-Public Use
  Company Number: TCI2003A02488

PATIENT
  Age: 64 Year
  Sex: Male

DRUGS (7)
  1. ACTOS [Suspect]
     Indication: DIABETES MELLITUS
     Dosage: SEE IMAGE, PER ORAL
     Route: 048
     Dates: start: 20030421, end: 20030427
  2. ACTOS [Suspect]
     Indication: DIABETES MELLITUS
     Dosage: SEE IMAGE, PER ORAL
     Route: 048
     Dates: start: 20030428
  3. ACTOS [Suspect]
     Indication: DIABETES MELLITUS
     Dosage: SEE IMAGE, PER ORAL
     Route: 048
     Dates: start: 20031025
  4. GLYBURIDE [Suspect]
     Dosage: SEE IMAGE, PER ORAL
     Route: 048
     Dates: start: 20030421, end: 20030427
  5. GLYBURIDE [Suspect]
     Dosage: SEE IMAGE, PER ORAL
     Route: 048
     Dates: start: 20030428, end: 20030508
  6. GLYBURIDE [Suspect]
     Dosage: SEE IMAGE, PER ORAL
     Route: 048
     Dates: start: 20030509, end: 20030618
  7. GLYBURIDE [Suspect]
     Dosage: SEE IMAGE, PER ORAL
     Route: 048
     Dates: start: 20030913

REACTIONS (1)
  - HAEMOLYTIC ANAEMIA [None]
